FAERS Safety Report 25428790 (Version 1)
Quarter: 2025Q2

REPORT INFORMATION
  Report Type: Spontaneous
  Country: US (occurrence: US)
  Receive Date: 20250612
  Receipt Date: 20250612
  Transmission Date: 20250716
  Serious: Yes (Other)
  Sender: ROCHE
  Company Number: US-ROCHE-10000304550

PATIENT
  Sex: Male

DRUGS (2)
  1. XOLAIR [Suspect]
     Active Substance: OMALIZUMAB
     Indication: Asthma
     Dosage: STRENGTH: 300 MG/ 2 ML
     Route: 058
     Dates: start: 202311
  2. XOLAIR [Suspect]
     Active Substance: OMALIZUMAB
     Dosage: STRENGTH: 75 MG /0.5 ML
     Route: 058
     Dates: start: 202311

REACTIONS (3)
  - Anaphylactic reaction [Unknown]
  - Skin wound [Unknown]
  - Eczema [Unknown]
